FAERS Safety Report 5496704-2 (Version None)
Quarter: 2007Q4

REPORT INFORMATION
  Report Type: 
  Country: None (occurrence: None)
  Receive Date: 20071025
  Receipt Date: 20070706
  Transmission Date: 20080405
  Serious: No
  Sender: FDA-Public Use
  Company Number: A0662178A

PATIENT
  Age: 83 Year
  Sex: Female

DRUGS (12)
  1. ADVAIR DISKUS 100/50 [Suspect]
     Indication: CHRONIC OBSTRUCTIVE PULMONARY DISEASE
     Dosage: 1PUFF TWICE PER DAY
     Route: 055
     Dates: start: 20010101
  2. VITAMIN B COMPLEX CAP [Concomitant]
  3. MULTI-VITAMIN [Concomitant]
  4. VITAMIN E [Concomitant]
  5. CALCIUM/MAGNESIUM/ZINC [Concomitant]
  6. ZYRTEC [Concomitant]
  7. CHLOR-TRIMETON [Concomitant]
  8. ALBUTEROL [Concomitant]
  9. FLUTICASONE NASAL SPRAY [Concomitant]
  10. LORAZEPAM [Concomitant]
  11. OXYGEN [Concomitant]
  12. CYMBALTA [Concomitant]

REACTIONS (9)
  - BURNING SENSATION [None]
  - CHEST PAIN [None]
  - COUGH [None]
  - DYSPHONIA [None]
  - EAR INFECTION [None]
  - HOT FLUSH [None]
  - MYALGIA [None]
  - PHARYNGITIS [None]
  - SINUSITIS [None]
